FAERS Safety Report 6338435-2 (Version None)
Quarter: 2009Q3

REPORT INFORMATION
  Report Type: 
  Country: None (occurrence: None)
  Receive Date: 20090901
  Receipt Date: 20090817
  Transmission Date: 20100115
  Serious: Yes (Death)
  Sender: FDA-Public Use
  Company Number: 2009AL002564

PATIENT
  Age: 73 Year
  Sex: Female

DRUGS (59)
  1. DIGOXIN [Suspect]
     Dosage: 0.125MG, DAILY, PO
     Route: 048
     Dates: start: 20070617, end: 20080501
  2. ALPRAZOLAM [Concomitant]
  3. NITROGLYCERIN [Concomitant]
  4. PLAVIX [Concomitant]
  5. LIPITOR [Concomitant]
  6. FUROSEMIDE [Concomitant]
  7. SPIRONOLACTONE [Concomitant]
  8. LISINOPRIL [Concomitant]
  9. METOPROLOL TARTRATE [Concomitant]
  10. TEMAZEPAM [Concomitant]
  11. POTASSIUM CHLORIDE [Concomitant]
  12. FLOMAX [Concomitant]
  13. COREG [Concomitant]
  14. LEXAPRO [Concomitant]
  15. BACMIN [Concomitant]
  16. BIDIL [Concomitant]
  17. BONIVA [Concomitant]
  18. AMOXICILLIN [Concomitant]
  19. ANHEDIST [Concomitant]
  20. CARVEDILOL [Concomitant]
  21. METOLAZONE [Concomitant]
  22. FERROUS SULFATE TAB [Concomitant]
  23. PROVENTIL-HFA [Concomitant]
  24. TIZANIDINE HCL [Concomitant]
  25. TRAMADOL HCL [Concomitant]
  26. PROMETHAZINE [Concomitant]
  27. SULFAMETHOXAZOLE [Concomitant]
  28. DIPHENOXYLATE [Concomitant]
  29. AZITHROMYCIN [Concomitant]
  30. VYTORIN [Concomitant]
  31. WELLBUTRIN XL [Concomitant]
  32. ZETIA [Concomitant]
  33. CLINIDINE [Concomitant]
  34. ATENOLOL [Concomitant]
  35. LISINOPRIL AND HYDROCHLOROTHIAZIDE [Concomitant]
  36. LEXAPRO [Concomitant]
  37. DEPO-ESTRADIOL [Concomitant]
  38. TRAMADOL HCL [Concomitant]
  39. HYOSCYAMINE [Concomitant]
  40. ANDEHIST-DM-NR [Concomitant]
  41. HFA [Concomitant]
  42. CVS STOOL SOFT CALC [Concomitant]
  43. SULFAMETHOXAZOLE AND TRIMETHOPRIM [Concomitant]
  44. DIPHENOXYLATE HCL + ATROPINE SULFATE [Concomitant]
  45. DEPO-ESTRADIOL [Concomitant]
  46. CP DEC-DM [Concomitant]
  47. PLAVIX [Concomitant]
  48. ISOSORBIDE [Concomitant]
  49. SERTRALINE HCL [Concomitant]
  50. CLONAZEPAM [Concomitant]
  51. AMOXICILLIN AND CLAVULANATE POTASSIUM [Concomitant]
  52. MYHIST-DM [Concomitant]
  53. ASPIRIN [Concomitant]
  54. ZAROXOLYN [Concomitant]
  55. SIMVASTATIN [Concomitant]
  56. SURFAK [Concomitant]
  57. VERSED FENTANYL [Concomitant]
  58. INAPSINE [Concomitant]
  59. INTEGRILIN [Concomitant]

REACTIONS (36)
  - ABDOMINAL DISTENSION [None]
  - ANGINA UNSTABLE [None]
  - ANXIETY [None]
  - ARTERIOSCLEROSIS CORONARY ARTERY [None]
  - ASTHENIA [None]
  - ATRIOVENTRICULAR BLOCK FIRST DEGREE [None]
  - CARDIAC FAILURE ACUTE [None]
  - CARDIAC FAILURE CHRONIC [None]
  - CARDIAC FAILURE CONGESTIVE [None]
  - CARDIOMEGALY [None]
  - CHEST DISCOMFORT [None]
  - DEPRESSION [None]
  - DYSLIPIDAEMIA [None]
  - DYSPNOEA [None]
  - DYSPNOEA PAROXYSMAL NOCTURNAL [None]
  - ECONOMIC PROBLEM [None]
  - FATIGUE [None]
  - HYPERLIPIDAEMIA [None]
  - IN-STENT CORONARY ARTERY RESTENOSIS [None]
  - INJURY [None]
  - ISCHAEMIC CARDIOMYOPATHY [None]
  - JUGULAR VEIN DISTENSION [None]
  - LUNG NEOPLASM [None]
  - MUSCULOSKELETAL PAIN [None]
  - MYOCARDIAL INFARCTION [None]
  - NAUSEA [None]
  - OEDEMA [None]
  - ORTHOPNOEA [None]
  - PALPITATIONS [None]
  - PROTHROMBIN TIME PROLONGED [None]
  - RALES [None]
  - RENAL FAILURE [None]
  - SURGERY [None]
  - THERAPEUTIC AGENT TOXICITY [None]
  - UNEVALUABLE EVENT [None]
  - WEIGHT DECREASED [None]
